FAERS Safety Report 7107357-1 (Version None)
Quarter: 2010Q4

REPORT INFORMATION
  Report Type: 
  Country: None (occurrence: None)
  Receive Date: 20101111
  Receipt Date: 20101111
  Transmission Date: 20110411
  Serious: Yes (Hospitalization)
  Sender: FDA-Public Use
  Company Number: None

PATIENT
  Age: 65 Year
  Sex: Female

DRUGS (1)
  1. AVELOX [Suspect]
     Indication: SINUSITIS
     Dosage: 400MG ONCE DAILY PO
     Route: 048
     Dates: start: 20101028, end: 20101028

REACTIONS (6)
  - FLUSHING [None]
  - HYPOAESTHESIA ORAL [None]
  - HYPOTENSION [None]
  - LIP SWELLING [None]
  - PRURITUS [None]
  - TREMOR [None]
